FAERS Safety Report 13692207 (Version 1)
Quarter: 2017Q2

REPORT INFORMATION
  Report Type: Spontaneous
  Country: US (occurrence: US)
  Receive Date: 20170627
  Receipt Date: 20170627
  Transmission Date: 20170830
  Serious: Yes (Hospitalization)
  Sender: FDA-Public Use
  Company Number: US-TORRENT-00003130

PATIENT
  Age: 81 Year
  Sex: Female
  Weight: 90 kg

DRUGS (6)
  1. LEVOTHYROXINE SODIUM. [Concomitant]
     Active Substance: LEVOTHYROXINE SODIUM
  2. HYDROCODONE [Concomitant]
     Active Substance: HYDROCODONE
  3. TOLTERODINE TARTRATE. [Suspect]
     Active Substance: TOLTERODINE TARTRATE
  4. ATENOLOL. [Concomitant]
     Active Substance: ATENOLOL
  5. LOVASTATIN. [Concomitant]
     Active Substance: LOVASTATIN
  6. ESCITALOPRAM [Concomitant]
     Active Substance: ESCITALOPRAM OXALATE

REACTIONS (3)
  - Malaise [Unknown]
  - Blood pressure increased [Recovered/Resolved]
  - Drug ineffective [Unknown]

NARRATIVE: CASE EVENT DATE: 20170611
